FAERS Safety Report 5315404-2 (Version None)
Quarter: 2007Q2

REPORT INFORMATION
  Report Type: 
  Country: None (occurrence: None)
  Receive Date: 20070503
  Receipt Date: 20070425
  Transmission Date: 20071010
  Serious: Yes (Other)
  Sender: FDA-Public Use
  Company Number: PHEH2007US06540

PATIENT
  Sex: Male

DRUGS (1)
  1. ZOMETA [Suspect]
     Dosage: 4 MG EVERY FOUR WEEKS
     Dates: start: 20060201, end: 20070101

REACTIONS (2)
  - DENTAL CARE [None]
  - OSTEONECROSIS [None]
